FAERS Safety Report 9705606 (Version 1)
Quarter: 2013Q4

REPORT INFORMATION
  Report Type: Spontaneous
  Country: US (occurrence: US)
  Receive Date: 20131122
  Receipt Date: 20131122
  Transmission Date: 20140711
  Serious: No
  Sender: FDA-Public Use
  Company Number: US-GILEAD-2008-0017124

PATIENT
  Sex: Female
  Weight: 114.76 kg

DRUGS (8)
  1. LETAIRIS [Suspect]
     Indication: PULMONARY ARTERIAL HYPERTENSION
     Route: 048
     Dates: start: 20080328
  2. LASIX [Concomitant]
     Route: 048
  3. PREDNISONE [Concomitant]
     Route: 048
  4. ASPIRIN [Concomitant]
     Route: 048
  5. VISTARIL [Concomitant]
     Route: 048
  6. VICODIN [Concomitant]
     Route: 048
  7. DILTIAZEM [Concomitant]
     Route: 048
  8. TRAZODONE [Concomitant]
     Route: 048

REACTIONS (1)
  - Bowel movement irregularity [None]
